FAERS Safety Report 10038710 (Version 1)
Quarter: 2014Q1

REPORT INFORMATION
  Report Type: Spontaneous
  Country: US (occurrence: US)
  Receive Date: 20140326
  Receipt Date: 20140326
  Transmission Date: 20141002
  Serious: No
  Sender: FDA-Public Use
  Company Number: US-BAYER-2014-043100

PATIENT
  Age: 15 Year
  Sex: Female
  Weight: 63 kg

DRUGS (2)
  1. ALEVE CAPLET [Suspect]
     Indication: MYALGIA
     Dosage: UNK
     Route: 048
  2. ALEVE CAPLET [Suspect]
     Indication: MYALGIA
     Dosage: 4 DF, UNK
     Route: 048
     Dates: start: 20140319, end: 20140319

REACTIONS (2)
  - Pain in extremity [Not Recovered/Not Resolved]
  - Extra dose administered [None]
